FAERS Safety Report 20795897 (Version 1)
Quarter: 2022Q2

REPORT INFORMATION
  Report Type: Report from Study
  Country: SZ (occurrence: SZ)
  Receive Date: 20220506
  Receipt Date: 20220506
  Transmission Date: 20220720
  Serious: Yes (Congenital Anomaly, Other)
  Sender: FDA-Public Use
  Company Number: SZ-GILEAD-2022-0579716

PATIENT
  Age: 34 Week
  Sex: Female

DRUGS (4)
  1. TENOFOVIR DISOPROXIL FUMARATE [Suspect]
     Active Substance: TENOFOVIR DISOPROXIL FUMARATE
     Indication: HIV infection
     Route: 064
  2. LAMIVUDINE [Suspect]
     Active Substance: LAMIVUDINE
     Indication: HIV infection
     Dosage: UNK
     Route: 064
  3. ZIDOVUDINE [Suspect]
     Active Substance: ZIDOVUDINE
     Indication: HIV infection
     Dosage: 2 MG/KG/HR
     Route: 064
  4. LOPINAVIR\RITONAVIR [Suspect]
     Active Substance: LOPINAVIR\RITONAVIR
     Indication: HIV infection
     Dosage: UNK
     Route: 064

REACTIONS (11)
  - Meningomyelocele [Unknown]
  - Arnold-Chiari malformation [Unknown]
  - Brain herniation [Recovered/Resolved]
  - Spina bifida [Unknown]
  - Neonatal respiratory distress syndrome [Unknown]
  - Necrotising enterocolitis neonatal [Recovered/Resolved]
  - Hydromyelia [Unknown]
  - Premature baby [Recovered/Resolved]
  - Macrocephaly [Unknown]
  - Hyperbilirubinaemia neonatal [Unknown]
  - Foetal exposure during pregnancy [Recovered/Resolved]
